FAERS Safety Report 4899935-5 (Version None)
Quarter: 2006Q1

REPORT INFORMATION
  Report Type: 
  Country: None (occurrence: None)
  Receive Date: 20060203
  Receipt Date: 20060131
  Transmission Date: 20060701
  Serious: Yes (Life-Threatening, Hospitalization, Other)
  Sender: FDA-Public Use
  Company Number: PHEH2006US01530

PATIENT
  Age: 8 Day
  Sex: Female
  Weight: 3.3 kg

DRUGS (5)
  1. CLOZARIL [Suspect]
     Route: 064
  2. WELLBUTRIN [Suspect]
     Dosage: UNK, UNK
     Route: 064
  3. LITHIUM [Suspect]
     Route: 064
  4. FOLIC ACID [Concomitant]
     Route: 064
  5. DOCUSATE SODIUM [Concomitant]
     Route: 064

REACTIONS (5)
  - APNOEA [None]
  - CARDIAC MURMUR [None]
  - DRUG EXPOSURE DURING PREGNANCY [None]
  - GASTROOESOPHAGEAL REFLUX DISEASE [None]
  - MILK ALLERGY [None]
